FAERS Safety Report 6611501-X (Version None)
Quarter: 2010Q1

REPORT INFORMATION
  Report Type: 
  Country: None (occurrence: None)
  Receive Date: 20100222
  Receipt Date: 20100211
  Transmission Date: 20100710
  Serious: Yes (Hospitalization, Other)
  Sender: FDA-Public Use
  Company Number: 230135J09DEU

PATIENT
  Age: 60 Year
  Sex: Female
  Weight: 85 kg

DRUGS (1)
  1. REBIF [Suspect]
     Dates: start: 20070201

REACTIONS (8)
  - ARTHRALGIA [None]
  - CHILLS [None]
  - DEEP VEIN THROMBOSIS [None]
  - FATIGUE [None]
  - MYALGIA [None]
  - NAUSEA [None]
  - PRODUCT SUBSTITUTION ISSUE [None]
  - PRURITUS [None]
